FAERS Safety Report 5958027-4 (Version None)
Quarter: 2008Q4

REPORT INFORMATION
  Report Type: 
  Country: None (occurrence: None)
  Receive Date: 20081119
  Receipt Date: 20081112
  Transmission Date: 20090506
  Serious: Yes (Hospitalization)
  Sender: FDA-Public Use
  Company Number: FR-WYE-G02558308

PATIENT
  Age: 43 Year
  Sex: Female

DRUGS (5)
  1. PREMARIN [Suspect]
     Dosage: UNKNOWN
     Dates: start: 19890101, end: 19940101
  2. HYPERIUM [Concomitant]
     Dosage: 1 MG; FREQUENCY UNSPECIFIED
     Route: 048
  3. SOPROL [Concomitant]
     Dosage: 10 MG STRENGTH; FREQUENCY UNSPECIFIED
     Route: 048
  4. ANDROCUR [Suspect]
     Indication: POLYCYSTIC OVARIES
     Route: 048
     Dates: start: 19890101, end: 20060101
  5. APROVEL [Concomitant]
     Dosage: 300 MG STRENGTH; FREQUENCY UNSPECIFIED
     Route: 048

REACTIONS (2)
  - MENINGIOMA [None]
  - SCOTOMA [None]
